FAERS Safety Report 24586921 (Version 1)
Quarter: 2024Q4

REPORT INFORMATION
  Report Type: Report from Study
  Country: US (occurrence: US)
  Receive Date: 20241107
  Receipt Date: 20241107
  Transmission Date: 20250114
  Serious: Yes (Other)
  Sender: ABBVIE
  Company Number: US-ABBVIE-5813622

PATIENT
  Age: 47 Year
  Sex: Male

DRUGS (2)
  1. HUMIRA [Suspect]
     Active Substance: ADALIMUMAB
     Indication: Rheumatoid arthritis
     Route: 058
     Dates: start: 20240327
  2. HUMIRA [Suspect]
     Active Substance: ADALIMUMAB
     Dosage: LAST ADMIN DATE- MAR  2024
     Route: 058
     Dates: start: 20240307

REACTIONS (10)
  - Paralysis [Recovering/Resolving]
  - Pain in extremity [Unknown]
  - Swelling [Unknown]
  - Arthritis [Unknown]
  - Hypoaesthesia [Recovered/Resolved]
  - Paraesthesia [Unknown]
  - Condition aggravated [Recovering/Resolving]
  - Cervical vertebral fracture [Unknown]
  - Blood pressure abnormal [Unknown]
  - Sciatica [Recovering/Resolving]

NARRATIVE: CASE EVENT DATE: 20240101
